FAERS Safety Report 5102916-X (Version None)
Quarter: 2006Q3

REPORT INFORMATION
  Report Type: 
  Country: None (occurrence: None)
  Receive Date: 20060907
  Receipt Date: 20060822
  Transmission Date: 20061208
  Serious: Yes (Hospitalization)
  Sender: FDA-Public Use
  Company Number: FR200608004668

PATIENT
  Age: 79 Year
  Sex: Female
  Weight: 69 kg

DRUGS (2)
  1. HUMALOG MIX 75/25 [Suspect]
     Indication: DIABETES MELLITUS
     Dosage: 4 IU, DAILY (1/D), SUBCUTANEOUS
     Route: 058
  2. UMULINE NPH (HUMAN INSULIN (RDNA ORIGIN) NPH (HUMAN INSULIN (RDNA ORIG [Suspect]
     Indication: DIABETES MELLITUS
     Dosage: 28 IU, DAILY (1/D) SUBCUTANEOUS
     Route: 058

REACTIONS (5)
  - DECREASED APPETITE [None]
  - FALL [None]
  - HYPOGLYCAEMIA [None]
  - LOSS OF CONSCIOUSNESS [None]
  - MALAISE [None]
